FAERS Safety Report 7947280-3 (Version None)
Quarter: 2011Q4

REPORT INFORMATION
  Report Type: 
  Country: None (occurrence: None)
  Receive Date: 20111130
  Receipt Date: 20111121
  Transmission Date: 20120403
  Serious: Yes (Disabling, Other)
  Sender: FDA-Public Use
  Company Number: JP-SP-2011-02167

PATIENT
  Sex: Male

DRUGS (3)
  1. BENZAFIBRATE [Concomitant]
     Indication: HYPERLIPIDAEMIA
  2. IMMUCYST [Suspect]
     Indication: BLADDER CANCER
     Route: 043
     Dates: start: 20100301, end: 20100401
  3. NATEGLINIDE [Concomitant]
     Indication: DIABETES MELLITUS

REACTIONS (8)
  - HAEMATURIA [None]
  - REDUCED BLADDER CAPACITY [None]
  - POLLAKIURIA [None]
  - HYDRONEPHROSIS [None]
  - TUBERCULOSIS BLADDER [None]
  - BLADDER IRRITATION [None]
  - CYSTITIS NONINFECTIVE [None]
  - PYURIA [None]
